FAERS Safety Report 11307421 (Version 2)
Quarter: 2015Q3

REPORT INFORMATION
  Report Type: Spontaneous
  Country: JP (occurrence: JP)
  Receive Date: 20150723
  Receipt Date: 20150805
  Transmission Date: 20151125
  Serious: Yes (Other)
  Sender: FDA-Public Use
  Company Number: JP-ASTRAZENECA-2015SE71058

PATIENT
  Age: 20266 Day
  Sex: Female

DRUGS (7)
  1. PURSENNID [Concomitant]
     Active Substance: SENNOSIDES A AND B
     Indication: CONSTIPATION
     Route: 048
     Dates: end: 20150714
  2. EFFORTIL [Concomitant]
     Active Substance: ETILEFRINE HYDROCHLORIDE
     Indication: HYPOTENSION
     Route: 048
     Dates: start: 20141120, end: 20150714
  3. MAGNESIUM OXIDE. [Concomitant]
     Active Substance: MAGNESIUM OXIDE
     Indication: CONSTIPATION
     Route: 048
     Dates: end: 20150714
  4. MEROPEN [Suspect]
     Active Substance: MEROPENEM
     Indication: PNEUMONIA
     Route: 041
     Dates: start: 20150701, end: 20150713
  5. LANSOPRAZOLE. [Concomitant]
     Active Substance: LANSOPRAZOLE
     Indication: GASTRIC ULCER
     Dates: start: 20150629, end: 20150714
  6. NEUQUINON [Concomitant]
     Active Substance: UBIDECARENONE
     Indication: CARDIAC FAILURE
     Route: 048
     Dates: start: 20150611, end: 20150714
  7. TULOBUTEROL:TAPE HMT [Concomitant]
     Indication: BRONCHITIS
     Route: 062
     Dates: start: 20150706, end: 20150714

REACTIONS (6)
  - Blood pressure abnormal [Recovering/Resolving]
  - Chest discomfort [Unknown]
  - Altered state of consciousness [Unknown]
  - Seizure [Not Recovered/Not Resolved]
  - Therapy cessation [Unknown]
  - Oliguria [Unknown]

NARRATIVE: CASE EVENT DATE: 20150714
